FAERS Safety Report 5668146-8 (Version None)
Quarter: 2008Q1

REPORT INFORMATION
  Report Type: 
  Country: None (occurrence: None)
  Receive Date: 20080315
  Receipt Date: 20080218
  Transmission Date: 20080703
  Serious: No
  Sender: FDA-Public Use
  Company Number: US-ABBOTT-08P-163-0438749-00

PATIENT
  Sex: Female
  Weight: 79.45 kg

DRUGS (3)
  1. HUMIRA [Suspect]
     Indication: COLITIS
     Route: 058
     Dates: start: 20071201
  2. MESALAMINE [Concomitant]
     Indication: COLITIS
     Route: 048
     Dates: start: 20060101
  3. BIRTH CONTROL [Concomitant]
     Indication: CONTRACEPTION
     Route: 048
     Dates: start: 20070701

REACTIONS (2)
  - RESPIRATORY TRACT CONGESTION [None]
  - SINUSITIS [None]
